FAERS Safety Report 7955574-0 (Version None)
Quarter: 2011Q4

REPORT INFORMATION
  Report Type: 
  Country: None (occurrence: None)
  Receive Date: 20111202
  Receipt Date: 20111123
  Transmission Date: 20120403
  Serious: Yes (Hospitalization)
  Sender: FDA-Public Use
  Company Number: FR-ASTRAZENECA-2011SE71636

PATIENT
  Age: 19 Year
  Sex: Male

DRUGS (3)
  1. QUETIAPINE FUMARATE [Suspect]
     Indication: AUTISM
     Route: 048
     Dates: start: 20111118, end: 20111118
  2. QUETIAPINE FUMARATE [Suspect]
     Route: 048
     Dates: start: 20111120
  3. QUETIAPINE FUMARATE [Suspect]
     Route: 048
     Dates: start: 20111119, end: 20111119

REACTIONS (3)
  - OPPOSITIONAL DEFIANT DISORDER [None]
  - AGITATION [None]
  - OFF LABEL USE [None]
